FAERS Safety Report 7973625-4 (Version None)
Quarter: 2011Q4

REPORT INFORMATION
  Report Type: 
  Country: None (occurrence: None)
  Receive Date: 20111201
  Receipt Date: 20111121
  Transmission Date: 20120403
  Serious: Yes (Hospitalization)
  Sender: FDA-Public Use
  Company Number: 2011SP045082

PATIENT
  Age: 53 Year
  Sex: Male
  Weight: 112 kg

DRUGS (3)
  1. TEMOZOLOMIDE [Suspect]
     Indication: GLIOMA
     Dosage: 160 MG;PO
     Route: 048
     Dates: start: 20110816
  2. TEMOZOLOMIDE [Suspect]
     Indication: GLIOMA
     Dosage: 160 MG;PO
     Route: 048
     Dates: start: 20110920
  3. ENOXAPARIN SODIUM [Concomitant]

REACTIONS (4)
  - PYREXIA [None]
  - SEPSIS [None]
  - PULMONARY EMBOLISM [None]
  - HYPOTENSION [None]
